FAERS Safety Report 13164574 (Version 1)
Quarter: 2017Q1

REPORT INFORMATION
  Report Type: Spontaneous
  Country: US (occurrence: US)
  Receive Date: 20170130
  Receipt Date: 20170130
  Transmission Date: 20170428
  Serious: No
  Sender: FDA-Public Use
  Company Number: PHEH2017US002842

PATIENT
  Sex: Male

DRUGS (1)
  1. COSENTYX [Suspect]
     Active Substance: SECUKINUMAB
     Indication: ANKYLOSING SPONDYLITIS
     Route: 065

REACTIONS (8)
  - Muscle contractions involuntary [Unknown]
  - Skin striae [Unknown]
  - Muscle spasms [Unknown]
  - Lipoma [Unknown]
  - Pain [Unknown]
  - Headache [Unknown]
  - Tachycardia [Unknown]
  - Folliculitis [Unknown]
